FAERS Safety Report 7989027-0 (Version None)
Quarter: 2011Q4

REPORT INFORMATION
  Report Type: 
  Country: None (occurrence: None)
  Receive Date: 20111219
  Receipt Date: 20111212
  Transmission Date: 20120403
  Serious: Yes (Life-Threatening, Other)
  Sender: FDA-Public Use
  Company Number: US-BAYER-2011-031106

PATIENT
  Age: 25 Year
  Sex: Female
  Weight: 109 kg

DRUGS (7)
  1. YAZ [Suspect]
     Indication: CONTRACEPTION
     Dosage: UNK
     Route: 048
     Dates: start: 20090101, end: 20090501
  2. CLARITIN [Concomitant]
     Dosage: 20 MG, UNK
  3. ACIPHEX [Concomitant]
     Dosage: 20 MG, UNK
  4. XANAX [Concomitant]
     Dosage: 0.025 MG, UNK
  5. NEXIUM [Concomitant]
  6. COMPAZINE [Concomitant]
  7. VICODIN [Concomitant]

REACTIONS (10)
  - ORGAN FAILURE [None]
  - EXERCISE TOLERANCE DECREASED [None]
  - PAIN [None]
  - ANXIETY [None]
  - GALLBLADDER NON-FUNCTIONING [None]
  - EMOTIONAL DISTRESS [None]
  - FATIGUE [None]
  - ANHEDONIA [None]
  - CHOLECYSTITIS CHRONIC [None]
  - INJURY [None]
